FAERS Safety Report 14239378 (Version 6)
Quarter: 2018Q1

REPORT INFORMATION
  Report Type: Spontaneous
  Country: US (occurrence: US)
  Receive Date: 20171130
  Receipt Date: 20180320
  Transmission Date: 20180508
  Serious: No
  Sender: FDA-Public Use
  Company Number: US-PFIZER INC-2017512679

PATIENT
  Age: 50 Year
  Sex: Female
  Weight: 113 kg

DRUGS (4)
  1. SUTENT [Suspect]
     Active Substance: SUNITINIB MALATE
     Dosage: 50 MG, CYCLIC (DAILY 2 WEEKS ON AND 1 WEEK OFF)
     Route: 048
     Dates: start: 20171205
  2. SUTENT [Suspect]
     Active Substance: SUNITINIB MALATE
     Indication: METASTATIC RENAL CELL CARCINOMA
     Dosage: 50 MG, CYCLIC (D1-14 Q21 DAYS)
     Route: 048
     Dates: start: 20171121
  3. SUTENT [Suspect]
     Active Substance: SUNITINIB MALATE
     Dosage: 50 MG, CYCLIC (DAILY 2 WEEKS ON AND 1 WEEK OFF)
     Route: 048
     Dates: start: 201711, end: 20171127
  4. SUTENT [Suspect]
     Active Substance: SUNITINIB MALATE
     Dosage: 50 MG, CYCLIC (DAYS 1-14 Q21 DAYS)
     Route: 048
     Dates: start: 20171121

REACTIONS (17)
  - Oral discomfort [Not Recovered/Not Resolved]
  - Hypertension [Recovered/Resolved]
  - Temperature regulation disorder [Unknown]
  - Vulvovaginal burning sensation [Unknown]
  - Nausea [Unknown]
  - Paraesthesia oral [Recovered/Resolved]
  - Feeling cold [Unknown]
  - Glossitis [Unknown]
  - Swollen tongue [Not Recovered/Not Resolved]
  - Thyroid disorder [Unknown]
  - Anorectal discomfort [Unknown]
  - Urinary tract infection [Not Recovered/Not Resolved]
  - Oral pain [Unknown]
  - Dysgeusia [Unknown]
  - Glossodynia [Not Recovered/Not Resolved]
  - Cystitis [Unknown]
  - Constipation [Unknown]

NARRATIVE: CASE EVENT DATE: 2017
